FAERS Safety Report 12784333 (Version 1)
Quarter: 2016Q3

REPORT INFORMATION
  Report Type: Spontaneous
  Country: CH (occurrence: CH)
  Receive Date: 20160927
  Receipt Date: 20160927
  Transmission Date: 20161109
  Serious: Yes (Other)
  Sender: FDA-Public Use
  Company Number: CH-BEH-200813055

PATIENT
  Sex: Female

DRUGS (1)
  1. VIVAGLOBIN [Suspect]
     Active Substance: HUMAN IMMUNOGLOBULIN G
     Dosage: DAILY DOSE QUANTITY: 10, DAILY DOSE UNIT: ML
     Route: 058
     Dates: start: 200708

REACTIONS (8)
  - Chest discomfort [Recovered/Resolved]
  - Pulmonary function test decreased [Recovered/Resolved]
  - Drug ineffective [Recovered/Resolved]
  - Obstructive airways disorder [Recovered/Resolved]
  - Adverse reaction [Unknown]
  - Cough [Recovered/Resolved]
  - Anaphylactoid reaction [Recovered/Resolved]
  - Dyspnoea [Recovered/Resolved]
